FAERS Safety Report 18249986 (Version 5)
Quarter: 2021Q2

REPORT INFORMATION
  Report Type: Spontaneous
  Country: US (occurrence: US)
  Receive Date: 20200909
  Receipt Date: 20210518
  Transmission Date: 20210717
  Serious: No
  Sender: FDA-Public Use
  Company Number: US-PFIZER INC-2020348406

PATIENT
  Age: 80 Year
  Sex: Female

DRUGS (5)
  1. BRAFTOVI [Suspect]
     Active Substance: ENCORAFENIB
     Dosage: 300 MG, 1X/DAY
     Dates: start: 20200807
  2. BRAFTOVI [Suspect]
     Active Substance: ENCORAFENIB
     Dosage: 225 MG, DAILY
  3. BRAFTOVI [Suspect]
     Active Substance: ENCORAFENIB
     Indication: LIP NEOPLASM MALIGNANT STAGE UNSPECIFIED
     Dosage: 450 MG, 1X/DAY
     Dates: start: 20200811
  4. MEKTOVI [Suspect]
     Active Substance: BINIMETINIB
     Dosage: 30 MG, 2X/DAY
     Dates: start: 20200807
  5. MEKTOVI [Suspect]
     Active Substance: BINIMETINIB
     Indication: LIP NEOPLASM MALIGNANT STAGE UNSPECIFIED
     Dosage: 45 MG, 2X/DAY
     Dates: start: 20200811

REACTIONS (8)
  - Pyrexia [Unknown]
  - Rash [Unknown]
  - Bone disorder [Unknown]
  - Nausea [Unknown]
  - Tendon disorder [Unknown]
  - Arthralgia [Unknown]
  - Fatigue [Unknown]
  - Neoplasm progression [Unknown]
